FAERS Safety Report 22380017 (Version 1)
Quarter: 2023Q2

REPORT INFORMATION
  Report Type: Spontaneous
  Country: NO (occurrence: NO)
  Receive Date: 20230529
  Receipt Date: 20230529
  Transmission Date: 20230722
  Serious: Yes (Hospitalization)
  Sender: FDA-Public Use
  Company Number: None

PATIENT
  Age: 44 Year
  Sex: Female
  Weight: 99 kg

DRUGS (2)
  1. PREDNISOLONE [Suspect]
     Active Substance: PREDNISOLONE
     Indication: Connective tissue disorder
     Dosage: 40 MG DAILY FOR ONE WEEK, THEREAFTER 20 MG FOR 3 DAYS, THEREAFTER 10 MG FOR 4 DAYS.
     Route: 065
     Dates: start: 20230426, end: 20230503
  2. ASPIRIN\MAGNESIUM OXIDE [Concomitant]
     Active Substance: ASPIRIN\MAGNESIUM OXIDE
     Indication: Anticoagulant therapy
     Dosage: ALBYL-E ENTEROTAB 75 MG,
     Route: 065
     Dates: start: 20230315

REACTIONS (6)
  - Blood glucose decreased [Recovered/Resolved]
  - Heart rate decreased [Unknown]
  - Hypoaesthesia [Unknown]
  - Dizziness [Unknown]
  - Malaise [Unknown]
  - Nausea [Unknown]

NARRATIVE: CASE EVENT DATE: 20230502
